FAERS Safety Report 4477200-8 (Version None)
Quarter: 2004Q4

REPORT INFORMATION
  Report Type: 
  Country: None (occurrence: None)
  Receive Date: 20041013
  Receipt Date: 19980128
  Transmission Date: 20050328
  Serious: Yes (Hospitalization)
  Sender: FDA-Public Use
  Company Number: PR/980128/15

PATIENT
  Age: 27 Year
  Sex: Male

DRUGS (1)
  1. BUPRENORPHINE HCL [Suspect]
     Dosage: IV
     Route: 042

REACTIONS (2)
  - INJECTION SITE NECROSIS [None]
  - INTENTIONAL MISUSE [None]
